FAERS Safety Report 7066223-0 (Version None)
Quarter: 2010Q4

REPORT INFORMATION
  Report Type: 
  Country: None (occurrence: None)
  Receive Date: 20101027
  Receipt Date: 20100630
  Transmission Date: 20110411
  Serious: Yes (Other)
  Sender: FDA-Public Use
  Company Number: HQWYE698611OCT04

PATIENT
  Sex: Female

DRUGS (3)
  1. PREMPRO [Suspect]
     Indication: PROPHYLAXIS
     Dosage: UNSPECIFIED
     Route: 048
     Dates: start: 19970101, end: 20030101
  2. PREMPRO [Suspect]
     Indication: OSTEOPOROSIS
  3. PREMPRO [Suspect]
     Indication: CARDIAC DISORDER

REACTIONS (1)
  - BREAST CANCER [None]
